FAERS Safety Report 5919658-0 (Version None)
Quarter: 2008Q4

REPORT INFORMATION
  Report Type: 
  Country: None (occurrence: None)
  Receive Date: 20081015
  Receipt Date: 20081006
  Transmission Date: 20090506
  Serious: Yes (Hospitalization)
  Sender: FDA-Public Use
  Company Number: US-AVENTIS-200718317US

PATIENT
  Sex: Male
  Weight: 114.53 kg

DRUGS (8)
  1. KETEK [Suspect]
     Indication: UPPER RESPIRATORY TRACT INFECTION
     Dosage: DOSE: 400 DISP#10, 2 DAILY
     Route: 048
     Dates: start: 20060106, end: 20060116
  2. KETEK [Suspect]
     Dosage: DOSE: 400 DISP#10, 2TABS DAILY
     Route: 048
     Dates: start: 20060405, end: 20060415
  3. LAMICTAL [Concomitant]
  4. LAMICTAL [Concomitant]
     Dosage: DOSE: 100 #30TABS
     Dates: start: 20060123, end: 20060701
  5. DIOVANE [Concomitant]
     Dates: end: 20070321
  6. DIOVANE [Concomitant]
     Dosage: DOSE: 80 MG #30DISP
     Dates: start: 20060613
  7. WELLBUTRIN [Concomitant]
  8. WELLBUTRIN [Concomitant]
     Dosage: DOSE: 300MG SR (#30)
     Route: 048
     Dates: start: 20070125, end: 20070301

REACTIONS (18)
  - ABDOMINAL PAIN UPPER [None]
  - ALANINE AMINOTRANSFERASE INCREASED [None]
  - ASPARTATE AMINOTRANSFERASE INCREASED [None]
  - ASTHENIA [None]
  - BLOOD BILIRUBIN INCREASED [None]
  - CHOLANGITIS [None]
  - COAGULOPATHY [None]
  - DIARRHOEA [None]
  - FATIGUE [None]
  - GASTROINTESTINAL INFLAMMATION [None]
  - HEPATITIS B [None]
  - JAUNDICE [None]
  - NAUSEA [None]
  - OEDEMA [None]
  - PAIN [None]
  - PYREXIA [None]
  - SOMNOLENCE [None]
  - VOMITING [None]
